FAERS Safety Report 24690617 (Version 2)
Quarter: 2024Q4

REPORT INFORMATION
  Report Type: Other
  Country: GB (occurrence: GB)
  Receive Date: 20241203
  Receipt Date: 20241205
  Transmission Date: 20250114
  Serious: Yes (Other)
  Sender: GLENMARK
  Company Number: None

PATIENT

DRUGS (2)
  1. NEBIVOLOL HYDROCHLORIDE [Suspect]
     Active Substance: NEBIVOLOL HYDROCHLORIDE
     Indication: Myocardial infarction
     Dosage: 5 MILLIGRAM AT NIGHT
     Route: 065
     Dates: start: 20211124
  2. NEBIVOLOL HYDROCHLORIDE [Suspect]
     Active Substance: NEBIVOLOL HYDROCHLORIDE
     Indication: Acute myocardial infarction
     Dosage: 2.5 MILLIGRAM
     Route: 065
     Dates: start: 202407

REACTIONS (3)
  - Panic attack [Not Recovered/Not Resolved]
  - Anxiety [Unknown]
  - Sleep terror [Unknown]

NARRATIVE: CASE EVENT DATE: 20240816
